FAERS Safety Report 24897893 (Version 1)
Quarter: 2025Q1

REPORT INFORMATION
  Report Type: Report from Study
  Country: US (occurrence: US)
  Receive Date: 20250129
  Receipt Date: 20250129
  Transmission Date: 20250409
  Serious: Yes (Other)
  Sender: ABBVIE
  Company Number: US-ABBVIE-6105655

PATIENT
  Sex: Male

DRUGS (1)
  1. VENETOCLAX [Suspect]
     Active Substance: VENETOCLAX
     Indication: Acute myelomonocytic leukaemia
     Dosage: TAKE 1 TABLET BY MOUTH DAILY WITH FOOD AND WATER FOR 10 DAYS OUT OF EVERY 28 DAY CYCLE
     Route: 048

REACTIONS (6)
  - Cataract [Unknown]
  - Constipation [Unknown]
  - Myelosuppression [Unknown]
  - Neutrophil count decreased [Unknown]
  - White blood cell count decreased [Unknown]
  - Platelet count decreased [Unknown]
